FAERS Safety Report 15322403 (Version 2)
Quarter: 2018Q3

REPORT INFORMATION
  Report Type: Spontaneous
  Country: DE (occurrence: DE)
  Receive Date: 20180827
  Receipt Date: 20180913
  Transmission Date: 20181010
  Serious: Yes (Hospitalization, Other)
  Sender: FDA-Public Use
  Company Number: DE-SA-2018SA226611

PATIENT
  Age: 46 Year
  Sex: Female
  Weight: 60 kg

DRUGS (3)
  1. BACLOFEN. [Concomitant]
     Active Substance: BACLOFEN
  2. PANTOPRAZOL [PANTOPRAZOLE] [Concomitant]
  3. AUBAGIO [Suspect]
     Active Substance: TERIFLUNOMIDE
     Indication: RELAPSING-REMITTING MULTIPLE SCLEROSIS
     Dosage: 14 MG, QD
     Route: 048
     Dates: start: 2017, end: 2018

REACTIONS (5)
  - Gastrointestinal infection [Not Recovered/Not Resolved]
  - Platelet disorder [Unknown]
  - Urinary tract infection [Not Recovered/Not Resolved]
  - Lymphocyte count abnormal [Unknown]
  - Leukopenia [Unknown]
